FAERS Safety Report 8823458 (Version 1)
Quarter: 2012Q4

REPORT INFORMATION
  Report Type: 
  Country: US (occurrence: US)
  Receive Date: 20121003
  Receipt Date: 20121003
  Transmission Date: 20130627
  Serious: No
  Sender: FDA-Public Use
  Company Number: US-009507513-2012SP033326

PATIENT
  Age: 32 Year
  Sex: Male
  Weight: 90.72 kg

DRUGS (3)
  1. CLARITIN [Suspect]
     Indication: SEASONAL ALLERGY
     Dosage: 10 mg, ONCE
     Route: 048
     Dates: start: 20120512
  2. CLARITIN [Suspect]
     Dosage: 10 mg, qam
     Route: 048
     Dates: start: 20120513
  3. CLARITIN [Suspect]
     Dosage: 10 mg, PRN
     Route: 048
     Dates: start: 20120514, end: 20120516

REACTIONS (1)
  - Overdose [Recovered/Resolved]
